APPROVED DRUG PRODUCT: AMIODARONE HYDROCHLORIDE
Active Ingredient: AMIODARONE HYDROCHLORIDE
Strength: 50MG/ML
Dosage Form/Route: INJECTABLE;INJECTION
Application: A203885 | Product #001
Applicant: HOSPIRA INC
Approved: Nov 25, 2013 | RLD: No | RS: No | Type: DISCN